FAERS Safety Report 6623477-X (Version None)
Quarter: 2010Q1

REPORT INFORMATION
  Report Type: 
  Country: None (occurrence: None)
  Receive Date: 20100305
  Receipt Date: 20100223
  Transmission Date: 20100710
  Serious: Yes (Hospitalization)
  Sender: FDA-Public Use
  Company Number: TCI2010A00131

PATIENT
  Age: 65 Year
  Sex: Female

DRUGS (7)
  1. ACTOS [Suspect]
     Indication: DIABETES MELLITUS
     Dosage: 15 MG (15 MG,1 IN 1 D) PER ORAL ; 15 MG (15 MG,1 IN 1 D) PER ORAL
     Route: 048
     Dates: start: 20070101, end: 20090201
  2. ACTOS [Suspect]
     Indication: DIABETES MELLITUS
     Dosage: 15 MG (15 MG,1 IN 1 D) PER ORAL ; 15 MG (15 MG,1 IN 1 D) PER ORAL
     Route: 048
     Dates: start: 20090601, end: 20100112
  3. BASEN OD (VOGLIBOSE) [Concomitant]
  4. AMLODIN OD (AMLODIPINE BESILATE) [Concomitant]
  5. DIBETOS (BUFORMIN HYDROCHLORIDE) [Concomitant]
  6. AMARYL [Concomitant]
  7. MICARDIS [Concomitant]

REACTIONS (3)
  - BLOOD GLUCOSE INCREASED [None]
  - FALL [None]
  - SPINAL COMPRESSION FRACTURE [None]
